FAERS Safety Report 11811705 (Version 1)
Quarter: 2015Q4

REPORT INFORMATION
  Report Type: Report from Study
  Country: None (occurrence: US)
  Receive Date: 20151208
  Receipt Date: 20151208
  Transmission Date: 20160305
  Serious: Yes (Hospitalization)
  Sender: FDA-Public Use
  Company Number: US-EISAI MEDICAL RESEARCH-EC-2015-011366

PATIENT
  Age: 64 Year
  Sex: Female
  Weight: 76.4 kg

DRUGS (14)
  1. SENEKOT S [Concomitant]
  2. HYDROCODONE/ACETAMINOPHEN [Concomitant]
     Active Substance: ACETAMINOPHEN\HYDROCODONE
  3. LEVOTHYROXINE. [Concomitant]
     Active Substance: LEVOTHYROXINE
  4. CALCIUM-VITAMIN D [Concomitant]
  5. COREG [Concomitant]
     Active Substance: CARVEDILOL
  6. LENVIMA [Suspect]
     Active Substance: LENVATINIB
     Indication: PAPILLARY THYROID CANCER
     Route: 048
     Dates: start: 20151012, end: 20151104
  7. LENVIMA [Suspect]
     Active Substance: LENVATINIB
     Route: 048
     Dates: start: 20151116, end: 20151117
  8. XANAX [Concomitant]
     Active Substance: ALPRAZOLAM
  9. LISINOPRIL-HYDROCHLOROTHIAZIDE [Concomitant]
     Active Substance: HYDROCHLOROTHIAZIDE\LISINOPRIL
  10. HYDROCHLOROTHIAZIDE. [Concomitant]
     Active Substance: HYDROCHLOROTHIAZIDE
  11. LENVIMA [Suspect]
     Active Substance: LENVATINIB
     Route: 048
     Dates: start: 20151118
  12. IBUPROFEN. [Concomitant]
     Active Substance: IBUPROFEN
  13. NORVASC [Concomitant]
     Active Substance: AMLODIPINE BESYLATE
  14. POTASSIUM CHLORIDE. [Concomitant]
     Active Substance: POTASSIUM CHLORIDE

REACTIONS (9)
  - Hypertension [Recovering/Resolving]
  - Generalised tonic-clonic seizure [Recovered/Resolved]
  - Fatigue [Not Recovered/Not Resolved]
  - Malaise [Recovering/Resolving]
  - Feeling abnormal [Not Recovered/Not Resolved]
  - Dysphonia [Not Recovered/Not Resolved]
  - Platelet count decreased [Not Recovered/Not Resolved]
  - Faeces discoloured [Recovered/Resolved]
  - Asthenia [Recovering/Resolving]

NARRATIVE: CASE EVENT DATE: 201510
